FAERS Safety Report 16232795 (Version 1)
Quarter: 2019Q2

REPORT INFORMATION
  Report Type: Spontaneous
  Country: US (occurrence: US)
  Receive Date: 20190423
  Receipt Date: 20190423
  Transmission Date: 20190711
  Serious: Yes (Hospitalization, Disabling)
  Sender: FDA-Public Use
  Company Number: None

PATIENT
  Age: 85 Year
  Sex: Male
  Weight: 96.75 kg

DRUGS (2)
  1. PLAVIX GENERIC [Suspect]
     Active Substance: CLOPIDOGREL BISULFATE
  2. PLAVIX [Suspect]
     Active Substance: CLOPIDOGREL BISULFATE
     Indication: ANTICOAGULANT THERAPY
     Dosage: ?          QUANTITY:1 TABLET(S);?
     Route: 048
     Dates: start: 20130109, end: 20190129

REACTIONS (3)
  - Contusion [None]
  - Epistaxis [None]
  - Blindness [None]

NARRATIVE: CASE EVENT DATE: 20130109
